FAERS Safety Report 5634860-3 (Version None)
Quarter: 2008Q1

REPORT INFORMATION
  Report Type: 
  Country: None (occurrence: None)
  Receive Date: 20080131
  Receipt Date: 20071029
  Transmission Date: 20080703
  Serious: Yes (Other)
  Sender: FDA-Public Use
  Company Number: PHEH2007US12018

PATIENT
  Sex: Female

DRUGS (1)
  1. TEKTURNA [Suspect]
     Indication: HYPERTENSION
     Dosage: 150 MG, QD, ORAL
     Route: 048

REACTIONS (8)
  - COUGH [None]
  - FATIGUE [None]
  - FEELING ABNORMAL [None]
  - HYPERTENSION [None]
  - MEDICATION RESIDUE [None]
  - NIGHT SWEATS [None]
  - PHARYNGEAL OEDEMA [None]
  - RESPIRATORY ARREST [None]
